FAERS Safety Report 12705982 (Version 1)
Quarter: 2016Q3

REPORT INFORMATION
  Report Type: Spontaneous
  Country: US (occurrence: None)
  Receive Date: 20160831
  Receipt Date: 20160831
  Transmission Date: 20161109
  Serious: No
  Sender: FDA-Public Use
  Company Number: None

PATIENT
  Age: 38 Year
  Sex: Female

DRUGS (1)
  1. STELARA [Suspect]
     Active Substance: USTEKINUMAB
     Indication: CROHN^S DISEASE
     Dosage: STELARA 90 MG SUBCUTANEOUS Q8 WEEKS
     Route: 058
     Dates: start: 20160503

REACTIONS (1)
  - Condition aggravated [None]

NARRATIVE: CASE EVENT DATE: 201608
